FAERS Safety Report 25830996 (Version 1)
Quarter: 2025Q3

REPORT INFORMATION
  Report Type: Spontaneous
  Country: US (occurrence: US)
  Receive Date: 20250922
  Receipt Date: 20250922
  Transmission Date: 20251021
  Serious: Yes (Hospitalization, Other)
  Sender: EMD SERONO INC
  Company Number: US-Merck Healthcare KGaA-2025046918

PATIENT

DRUGS (2)
  1. MAVENCLAD [Suspect]
     Active Substance: CLADRIBINE
     Indication: Multiple sclerosis
     Dosage: FIRST YEAR FIRST MONTH THERAPY: 1 TABLET ON DAYS 1 TO 5
     Dates: start: 20250207, end: 20250211
  2. MAVENCLAD [Suspect]
     Active Substance: CLADRIBINE
     Dosage: FIRST YEAR SECOND MONTH THERAPY: 1 TABLET ON DAYS 1 TO 5
     Dates: start: 20250307, end: 20250311

REACTIONS (2)
  - Syncope [Unknown]
  - COVID-19 [Unknown]
